APPROVED DRUG PRODUCT: ESTRADIOL
Active Ingredient: ESTRADIOL
Strength: 0.5MG
Dosage Form/Route: TABLET;ORAL
Application: A040114 | Product #003
Applicant: RUBICON RESEARCH LTD
Approved: Mar 14, 1996 | RLD: No | RS: No | Type: DISCN